FAERS Safety Report 23258642 (Version 1)
Quarter: 2023Q4

REPORT INFORMATION
  Report Type: Spontaneous
  Country: US (occurrence: None)
  Receive Date: 20231201
  Receipt Date: 20231201
  Transmission Date: 20240110
  Serious: No
  Sender: FDA-Public Use
  Company Number: None

PATIENT
  Age: 53 Year
  Sex: Female
  Weight: 71.1 kg

DRUGS (7)
  1. EMGALITY [Suspect]
     Active Substance: GALCANEZUMAB-GNLM
     Dates: start: 20230801
  2. CYCLOSPORINE [Concomitant]
     Active Substance: CYCLOSPORINE
  3. DIOVAN [Concomitant]
     Active Substance: VALSARTAN
  4. URSODIOL [Concomitant]
     Active Substance: URSODIOL
  5. BIJUVA [Concomitant]
     Active Substance: ESTRADIOL\PROGESTERONE
  6. MAGNESIUM [Concomitant]
     Active Substance: MAGNESIUM
  7. VITAMIN C [Concomitant]
     Active Substance: ASCORBIC ACID

REACTIONS (2)
  - Alopecia [None]
  - Alopecia [None]

NARRATIVE: CASE EVENT DATE: 20231110
